FAERS Safety Report 6732626-4 (Version None)
Quarter: 2010Q2

REPORT INFORMATION
  Report Type: 
  Country: None (occurrence: None)
  Receive Date: 20100517
  Receipt Date: 20050613
  Transmission Date: 20101027
  Serious: Yes (Hospitalization)
  Sender: FDA-Public Use
  Company Number: WAES 0506BEL00021

PATIENT
  Age: 42 Year
  Sex: Male

DRUGS (4)
  1. TAB FINASTERIDE [Suspect]
     Indication: ALOPECIA
     Dosage: 1MG/DAILY, PO; 1 MG/DAILY, PO
     Route: 048
     Dates: start: 20000201, end: 20010601
  2. TAB FINASTERIDE [Suspect]
     Indication: ALOPECIA
     Dosage: 1MG/DAILY, PO; 1 MG/DAILY, PO
     Route: 048
     Dates: start: 20030401, end: 20050101
  3. CLORAZEPATE DIPOTASSIUM [Concomitant]
  4. MINOXIDIL [Concomitant]

REACTIONS (1)
  - BREAST CANCER MALE [None]
